FAERS Safety Report 20045730 (Version 1)
Quarter: 2021Q4

REPORT INFORMATION
  Report Type: Spontaneous
  Country: US (occurrence: None)
  Receive Date: 20211108
  Receipt Date: 20211108
  Transmission Date: 20220303
  Serious: No
  Sender: FDA-Public Use
  Company Number: None

PATIENT
  Age: 28 Year
  Sex: Female

DRUGS (3)
  1. BAMLANIVIMAB\ETESEVIMAB [Suspect]
     Active Substance: BAMLANIVIMAB\ETESEVIMAB
     Dates: start: 20211108, end: 20211108
  2. Bam [Concomitant]
     Dates: start: 20211108, end: 20211108
  3. Etes [Concomitant]
     Dates: start: 20211108, end: 20211108

REACTIONS (2)
  - Back pain [None]
  - Chest discomfort [None]

NARRATIVE: CASE EVENT DATE: 20211108
